FAERS Safety Report 11984369 (Version 1)
Quarter: 2016Q1

REPORT INFORMATION
  Report Type: Spontaneous
  Country: US (occurrence: US)
  Receive Date: 20160201
  Receipt Date: 20160201
  Transmission Date: 20160526
  Serious: No
  Sender: FDA-Public Use
  Company Number: US-KADMON PHARMACEUTICALS, LLC-KAD201507-002272

PATIENT
  Age: 56 Year
  Sex: Male

DRUGS (8)
  1. VIEKIRA PAK [Suspect]
     Active Substance: DASABUVIR\OMBITASVIR\PARITAPREVIR\RITONAVIR
     Indication: HEPATITIS C
     Dosage: TABLET
     Route: 048
     Dates: start: 20150601, end: 20150628
  2. DULOXETINE. [Concomitant]
     Active Substance: DULOXETINE
  3. PANTOPRAZOLE [Concomitant]
     Active Substance: PANTOPRAZOLE SODIUM
  4. OXYCODONE [Concomitant]
     Active Substance: OXYCODONE
  5. CARVEDILOL. [Concomitant]
     Active Substance: CARVEDILOL
  6. RIBAVIRIN. [Suspect]
     Active Substance: RIBAVIRIN
     Indication: HEPATITIS C
     Route: 048
     Dates: start: 20150601, end: 20150628
  7. GABAPENTIN. [Concomitant]
     Active Substance: GABAPENTIN
  8. EVEROLIMUS [Suspect]
     Active Substance: EVEROLIMUS
     Route: 048

REACTIONS (6)
  - Drug level increased [Unknown]
  - Mouth ulceration [Unknown]
  - Weight decreased [Unknown]
  - Pharyngeal ulceration [Unknown]
  - Haemoglobin decreased [Unknown]
  - Drug interaction [Unknown]

NARRATIVE: CASE EVENT DATE: 2015
